FAERS Safety Report 8032843-X (Version None)
Quarter: 2011Q4

REPORT INFORMATION
  Report Type: 
  Country: None (occurrence: None)
  Receive Date: 20111202
  Receipt Date: 20090827
  Transmission Date: 20120403
  Serious: Yes (Life-Threatening, Hospitalization)
  Sender: FDA-Public Use
  Company Number: 2009-197874-NL

PATIENT
  Age: 36 Year
  Sex: Female
  Weight: 97.0698 kg

DRUGS (2)
  1. NUVARING [Suspect]
     Indication: DYSMENORRHOEA
     Dates: start: 20060101, end: 20070601
  2. ACETAMINOPHEN [Concomitant]

REACTIONS (4)
  - COLPOSCOPY [None]
  - DEEP VEIN THROMBOSIS [None]
  - METRORRHAGIA [None]
  - PULMONARY EMBOLISM [None]
